FAERS Safety Report 11443775 (Version 1)
Quarter: 2015Q3

REPORT INFORMATION
  Report Type: Spontaneous
  Country: US (occurrence: US)
  Receive Date: 20150901
  Receipt Date: 20150901
  Transmission Date: 20151125
  Serious: Yes (Other)
  Sender: FDA-Public Use
  Company Number: US-AMGEN-USASP2015087049

PATIENT
  Age: 15 Year
  Sex: Female

DRUGS (1)
  1. NPLATE [Suspect]
     Active Substance: ROMIPLOSTIM
     Indication: IMMUNE THROMBOCYTOPENIC PURPURA
     Dosage: UNK UNK, QWK
     Route: 065
     Dates: start: 20150602

REACTIONS (6)
  - Abdominal pain [Recovering/Resolving]
  - Fatigue [Unknown]
  - Platelet count abnormal [Unknown]
  - Headache [Unknown]
  - Pollakiuria [Unknown]
  - Therapeutic response decreased [Unknown]

NARRATIVE: CASE EVENT DATE: 2015
